FAERS Safety Report 10260870 (Version 1)
Quarter: 2014Q2

REPORT INFORMATION
  Report Type: Spontaneous
  Country: US (occurrence: US)
  Receive Date: 20140626
  Receipt Date: 20140626
  Transmission Date: 20141212
  Serious: Yes (Other)
  Sender: FDA-Public Use
  Company Number: PHEH2014US012714

PATIENT
  Sex: Male

DRUGS (1)
  1. TASIGNA [Suspect]
     Indication: CHRONIC MYELOID LEUKAEMIA
     Dosage: 300 MG, BID
     Dates: start: 201405

REACTIONS (3)
  - Chronic obstructive pulmonary disease [Recovered/Resolved]
  - Concomitant disease progression [Recovered/Resolved]
  - Dyspnoea [Recovered/Resolved]
